FAERS Safety Report 9275211 (Version 1)
Quarter: 2013Q2

REPORT INFORMATION
  Report Type: Spontaneous
  Country: US (occurrence: US)
  Receive Date: 20130507
  Receipt Date: 20130507
  Transmission Date: 20140414
  Serious: Yes (Hospitalization)
  Sender: FDA-Public Use
  Company Number: US-PFIZER INC-2013137435

PATIENT
  Age: 47 Year
  Sex: Female
  Weight: 95.24 kg

DRUGS (2)
  1. CALAN SR [Suspect]
     Indication: HYPERTENSION
     Dosage: 240 MG, DAILY
  2. XANAX [Concomitant]
     Indication: PANIC ATTACK
     Dosage: UNK

REACTIONS (1)
  - Nephrolithiasis [Unknown]
